FAERS Safety Report 5579202-7 (Version None)
Quarter: 2008Q1

REPORT INFORMATION
  Report Type: 
  Country: None (occurrence: None)
  Receive Date: 20080102
  Receipt Date: 20071221
  Transmission Date: 20080703
  Serious: Yes (Hospitalization)
  Sender: FDA-Public Use
  Company Number: B0500804A

PATIENT
  Age: 72 Year
  Sex: Male

DRUGS (2)
  1. GLAZIDIM [Suspect]
     Dosage: 2G PER DAY
     Dates: start: 20071126, end: 20071126
  2. METFORMINA [Concomitant]
     Indication: DIABETES MELLITUS
     Dosage: 500MG PER DAY
     Route: 048
     Dates: start: 20070501, end: 20071126

REACTIONS (2)
  - MYOCARDIAL INFARCTION [None]
  - PRURIGO [None]
